FAERS Safety Report 9392093 (Version 4)
Quarter: 2013Q3

REPORT INFORMATION
  Report Type: Spontaneous
  Country: JP (occurrence: JP)
  Receive Date: 20130709
  Receipt Date: 20130806
  Transmission Date: 20140515
  Serious: Yes (Hospitalization, Other)
  Sender: FDA-Public Use
  Company Number: JP-CELGENEUS-087-21660-13070918

PATIENT
  Age: 58 Year
  Sex: Male
  Weight: 65 kg

DRUGS (15)
  1. ABRAXANE [Suspect]
     Indication: METASTATIC GASTRIC CANCER
     Dosage: 324 MILLIGRAM
     Route: 041
     Dates: start: 20130416, end: 20130507
  2. ABRAXANE [Suspect]
     Route: 041
     Dates: start: 20130507
  3. ABRAXANE [Suspect]
     Dosage: 390 MILLIGRAM
     Route: 041
     Dates: start: 20130528, end: 20130528
  4. MYSLEE [Concomitant]
     Indication: INSOMNIA
     Dosage: 5 MILLIGRAM
     Route: 048
     Dates: start: 20121022
  5. LOXONIN [Concomitant]
     Indication: PRODUCT USED FOR UNKNOWN INDICATION
     Route: 065
  6. PROMAC D [Concomitant]
     Indication: GASTRITIS
     Dosage: 150 MILLIGRAM
     Route: 048
     Dates: start: 20130128
  7. NEXIUM [Concomitant]
     Indication: GASTROOESOPHAGEAL REFLUX DISEASE
     Dosage: 20 MILLIGRAM
     Route: 048
     Dates: start: 20121009
  8. MAGLAX [Concomitant]
     Indication: PRODUCT USED FOR UNKNOWN INDICATION
     Route: 048
  9. CONIEL [Concomitant]
     Indication: HYPERTENSION
     Dosage: 4 MILLIGRAM
     Route: 048
     Dates: start: 20130312
  10. AMLODIN [Concomitant]
     Indication: PRODUCT USED FOR UNKNOWN INDICATION
     Route: 048
  11. VITAMIN C [Concomitant]
     Indication: PRODUCT USED FOR UNKNOWN INDICATION
     Route: 065
  12. GOSHAJINKIGAN [Concomitant]
     Indication: NEUROPATHY PERIPHERAL
     Dosage: 5 GRAM
     Route: 048
     Dates: start: 20130416, end: 20130615
  13. SHAKUYAKUKANZOTO [Concomitant]
     Indication: PRODUCT USED FOR UNKNOWN INDICATION
     Dosage: 5 GRAM
     Route: 048
     Dates: start: 20130416, end: 20130615
  14. NEUTROGIN [Concomitant]
     Indication: NEUTROPHIL COUNT DECREASED
     Dosage: 50 MICROGRAM
     Route: 058
     Dates: end: 20130613
  15. MYONAL [Concomitant]
     Indication: HEADACHE
     Dosage: 150 MILLIGRAM
     Route: 065

REACTIONS (6)
  - Diplopia [Recovering/Resolving]
  - Tinnitus [Recovering/Resolving]
  - Headache [Recovering/Resolving]
  - Dizziness [Recovering/Resolving]
  - Nausea [Recovering/Resolving]
  - Vomiting [Recovering/Resolving]
